FAERS Safety Report 7698991-9 (Version None)
Quarter: 2011Q3

REPORT INFORMATION
  Report Type: 
  Country: None (occurrence: None)
  Receive Date: 20110819
  Receipt Date: 20110817
  Transmission Date: 20111222
  Serious: No
  Sender: FDA-Public Use
  Company Number: US-TEVA-297169USA

PATIENT
  Sex: Female
  Weight: 88.53 kg

DRUGS (7)
  1. PLAN B ONE-STEP [Suspect]
     Indication: POST COITAL CONTRACEPTION
     Dosage: 1.5 MILLIGRAM;
     Route: 048
     Dates: start: 20110815, end: 20110815
  2. WELLBUTRIN [Concomitant]
     Indication: DEPRESSION
  3. METFORMIN HYDROCHLORIDE [Concomitant]
     Indication: HYPERGLYCAEMIA
  4. DROSPIRENONE AND ETHINYL ESTRADIOL [Concomitant]
     Indication: CONTRACEPTION
  5. ZYRTEC [Concomitant]
     Indication: HYPERSENSITIVITY
  6. TOPAMAX [Concomitant]
     Indication: MIGRAINE
  7. SINGULAIR [Concomitant]
     Indication: ASTHMA

REACTIONS (2)
  - MENSTRUATION IRREGULAR [None]
  - PELVIC PAIN [None]
